FAERS Safety Report 4839558-7 (Version None)
Quarter: 2005Q4

REPORT INFORMATION
  Report Type: 
  Country: None (occurrence: None)
  Receive Date: 20051128
  Receipt Date: 20051128
  Transmission Date: 20060501
  Serious: No
  Sender: FDA-Public Use
  Company Number: None

PATIENT
  Sex: Female

DRUGS (1)
  1. PAXIL [Suspect]
     Indication: ANXIETY DISORDER
     Dosage: 20 AND 40 MG.  ONCE DAILY  PO
     Route: 048
     Dates: start: 20011120, end: 20051017

REACTIONS (8)
  - DIZZINESS [None]
  - DRUG WITHDRAWAL SYNDROME [None]
  - FEELING ABNORMAL [None]
  - NIGHT SWEATS [None]
  - NIGHTMARE [None]
  - PARAESTHESIA [None]
  - SENSORY DISTURBANCE [None]
  - SUICIDAL IDEATION [None]
